FAERS Safety Report 5088662-X (Version None)
Quarter: 2006Q3

REPORT INFORMATION
  Report Type: 
  Country: None (occurrence: None)
  Receive Date: 20060825
  Receipt Date: 20060306
  Transmission Date: 20061208
  Serious: No
  Sender: FDA-Public Use
  Company Number: US-BRISTOL-MYERS SQUIBB COMPANY-13304746

PATIENT

DRUGS (2)
  1. MUCOMYST [Suspect]
     Route: 055
  2. MUCINEX [Suspect]

REACTIONS (2)
  - NO ADVERSE EFFECT [None]
  - WRONG DRUG ADMINISTERED [None]
